FAERS Safety Report 10765998 (Version 2)
Quarter: 2015Q1

REPORT INFORMATION
  Report Type: Spontaneous
  Country: JP (occurrence: JP)
  Receive Date: 20150205
  Receipt Date: 20150225
  Transmission Date: 20150721
  Serious: Yes (Other)
  Sender: FDA-Public Use
  Company Number: JP-ASTELLAS-2015JP000967

PATIENT
  Age: 73 Year
  Sex: Male

DRUGS (11)
  1. PREDNISOLONE. [Concomitant]
     Active Substance: PREDNISOLONE
     Indication: PROSTATE CANCER
     Route: 048
     Dates: start: 20131107
  2. XTANDI [Suspect]
     Active Substance: ENZALUTAMIDE
     Indication: PROSTATE CANCER
     Route: 048
     Dates: start: 20140619
  3. METHYCOBAL [Concomitant]
     Active Substance: METHYLCOBALAMIN
     Indication: PROSTATE CANCER
     Route: 048
     Dates: start: 20140116
  4. BEPRICOR [Concomitant]
     Active Substance: BEPRIDIL
     Indication: CARDIAC FAILURE
     Route: 048
     Dates: start: 20090511
  5. FAMOTIDINE. [Concomitant]
     Active Substance: FAMOTIDINE
     Indication: GASTRIC ULCER
     Route: 048
     Dates: start: 20140313
  6. ALDACTONE [Concomitant]
     Active Substance: SPIRONOLACTONE
     Indication: PROSTATE CANCER
     Route: 048
     Dates: start: 20140320
  7. LYRICA [Concomitant]
     Active Substance: PREGABALIN
     Indication: PROSTATE CANCER
     Route: 048
     Dates: start: 20141120
  8. WARFARIN [Concomitant]
     Active Substance: WARFARIN
     Indication: CARDIAC FAILURE
     Route: 048
  9. PARAMIDIN [Concomitant]
     Active Substance: BUCOLOME
     Indication: HYPERURICAEMIA
     Route: 048
     Dates: start: 20090601
  10. CELECOX [Concomitant]
     Active Substance: CELECOXIB
     Indication: PROSTATE CANCER
     Route: 048
     Dates: start: 20141120
  11. TRAMAL [Concomitant]
     Active Substance: TRAMADOL
     Indication: PROSTATE CANCER
     Route: 048
     Dates: start: 20141204

REACTIONS (1)
  - Nail bed bleeding [Recovering/Resolving]

NARRATIVE: CASE EVENT DATE: 20150115
